FAERS Safety Report 4791909-8 (Version None)
Quarter: 2005Q4

REPORT INFORMATION
  Report Type: 
  Country: None (occurrence: None)
  Receive Date: 20051007
  Receipt Date: 20050928
  Transmission Date: 20060501
  Serious: Yes (Hospitalization)
  Sender: FDA-Public Use
  Company Number: PHHO2005JP15442

PATIENT
  Age: 69 Year
  Sex: Female
  Weight: 54 kg

DRUGS (6)
  1. NORVASC [Suspect]
     Dosage: UNK, UNK
     Route: 048
     Dates: start: 20030611, end: 20050111
  2. PL GRAN. [Suspect]
     Dates: end: 20050111
  3. ASTOMIN [Suspect]
     Dates: end: 20050111
  4. DASEN [Suspect]
     Dates: end: 20050111
  5. SELBEX [Suspect]
     Dates: end: 20050111
  6. DIOVAN [Suspect]
     Indication: HYPERTENSION
     Dosage: 40 MG, QD
     Dates: start: 20030625, end: 20050111

REACTIONS (1)
  - TOXIC SKIN ERUPTION [None]
